FAERS Safety Report 11219146 (Version 1)
Quarter: 2015Q2

REPORT INFORMATION
  Report Type: Spontaneous
  Country: DE (occurrence: DE)
  Receive Date: 20150625
  Receipt Date: 20150625
  Transmission Date: 20150821
  Serious: Yes (Hospitalization, Other)
  Sender: FDA-Public Use
  Company Number: PHHY2015DE006893

PATIENT
  Age: 77 Year
  Sex: Female

DRUGS (1)
  1. DIOVAN [Suspect]
     Active Substance: VALSARTAN
     Indication: HYPERTENSION
     Dosage: 1 DF,UNK
     Route: 048
     Dates: start: 2005, end: 20140826

REACTIONS (73)
  - Angioedema [Recovering/Resolving]
  - Cheilitis [Not Recovered/Not Resolved]
  - Dry mouth [Not Recovered/Not Resolved]
  - Heart rate increased [Not Recovered/Not Resolved]
  - Protein total decreased [Unknown]
  - Mucosal erosion [Not Recovered/Not Resolved]
  - Abdominal discomfort [Recovered/Resolved]
  - Rib fracture [Unknown]
  - Tibia fracture [Unknown]
  - Skin plaque [Not Recovered/Not Resolved]
  - Hyperkeratosis [Not Recovered/Not Resolved]
  - Erythema [Not Recovered/Not Resolved]
  - Pharyngeal oedema [Not Recovered/Not Resolved]
  - Aortic calcification [Unknown]
  - Eczema [Unknown]
  - Onychomycosis [Not Recovered/Not Resolved]
  - Dyspepsia [Not Recovered/Not Resolved]
  - Chapped lips [Not Recovered/Not Resolved]
  - Prothrombin time prolonged [Unknown]
  - C-reactive protein increased [Unknown]
  - Lipase increased [Unknown]
  - Ocular hyperaemia [Not Recovered/Not Resolved]
  - Dizziness [Not Recovered/Not Resolved]
  - Asthma [Not Recovered/Not Resolved]
  - Status asthmaticus [Unknown]
  - Lung infection [Unknown]
  - Polycystic liver disease [Unknown]
  - Arteriosclerosis [Unknown]
  - Gastroenteritis [Not Recovered/Not Resolved]
  - Eye pruritus [Not Recovered/Not Resolved]
  - Respiratory disorder [Unknown]
  - Uterine polyp [Unknown]
  - Drug intolerance [Unknown]
  - Blood lactate dehydrogenase increased [Unknown]
  - Vision blurred [Not Recovered/Not Resolved]
  - Rheumatic disorder [Recovering/Resolving]
  - Skin ulcer [Not Recovered/Not Resolved]
  - Diarrhoea [Not Recovered/Not Resolved]
  - Headache [Not Recovered/Not Resolved]
  - Road traffic accident [Unknown]
  - Pelvic fracture [Unknown]
  - Actinic keratosis [Not Recovered/Not Resolved]
  - Hypothyroidism [Unknown]
  - Renal cyst [Unknown]
  - Visual acuity reduced [Not Recovered/Not Resolved]
  - Insomnia [Not Recovered/Not Resolved]
  - Abdominal pain upper [Not Recovered/Not Resolved]
  - Bronchial hyperreactivity [Unknown]
  - Drug hypersensitivity [Unknown]
  - Pruritus [Not Recovered/Not Resolved]
  - Mental disorder [Unknown]
  - Dermatitis contact [Not Recovered/Not Resolved]
  - Spinal osteoarthritis [Unknown]
  - Eye inflammation [Not Recovered/Not Resolved]
  - Gait disturbance [Not Recovered/Not Resolved]
  - Fatigue [Not Recovered/Not Resolved]
  - Respiratory failure [Unknown]
  - Anaphylactic reaction [Unknown]
  - Gingival swelling [Unknown]
  - Abdominal distension [Unknown]
  - Micturition urgency [Not Recovered/Not Resolved]
  - Conjunctivitis allergic [Unknown]
  - Nausea [Not Recovered/Not Resolved]
  - Skin discolouration [Not Recovered/Not Resolved]
  - Skin disorder [Not Recovered/Not Resolved]
  - Musculoskeletal stiffness [Not Recovered/Not Resolved]
  - Neuralgia [Not Recovered/Not Resolved]
  - Cardiomegaly [Not Recovered/Not Resolved]
  - Blood creatine phosphokinase increased [Unknown]
  - International normalised ratio increased [Unknown]
  - Dyspnoea [Not Recovered/Not Resolved]
  - Vertigo [Not Recovered/Not Resolved]
  - Eye infection [Not Recovered/Not Resolved]

NARRATIVE: CASE EVENT DATE: 2005
